FAERS Safety Report 15514820 (Version 2)
Quarter: 2019Q2

REPORT INFORMATION
  Report Type: Spontaneous
  Country: CN (occurrence: CN)
  Receive Date: 20181016
  Receipt Date: 20190425
  Transmission Date: 20190711
  Serious: Yes (Hospitalization, Other)
  Sender: FDA-Public Use
  Company Number: CN-SUN PHARMACEUTICAL INDUSTRIES LTD-2018R1-187858

PATIENT
  Age: 58 Year
  Sex: Male

DRUGS (3)
  1. INSULIN [Concomitant]
     Active Substance: INSULIN NOS
     Indication: DIABETES MELLITUS
     Dosage: UNK
     Route: 065
  2. PREDNISONE. [Suspect]
     Active Substance: PREDNISONE
     Indication: GLOMERULONEPHRITIS MEMBRANOUS
     Dosage: 20 MILLIGRAM, DAILY
     Route: 065
  3. CEFDINIR. [Concomitant]
     Active Substance: CEFDINIR
     Indication: PRODUCT USED FOR UNKNOWN INDICATION
     Dosage: UNK
     Route: 048

REACTIONS (10)
  - Eye abscess [Recovered/Resolved]
  - Pneumonia [Recovering/Resolving]
  - Nocardiosis [Recovering/Resolving]
  - Brain abscess [Recovered/Resolved]
  - Candida infection [Recovering/Resolving]
  - Haemophilus infection [Recovering/Resolving]
  - Diabetes mellitus [Unknown]
  - Lung abscess [Recovered/Resolved]
  - Retinal haemorrhage [Recovered/Resolved]
  - Endophthalmitis [Recovering/Resolving]
